FAERS Safety Report 23019784 (Version 1)
Quarter: 2023Q4

REPORT INFORMATION
  Report Type: Spontaneous
  Country: US (occurrence: None)
  Receive Date: 20231002
  Receipt Date: 20231002
  Transmission Date: 20240110
  Serious: Yes (Other)
  Sender: FDA-Public Use
  Company Number: None

PATIENT
  Age: 33 Year
  Sex: Female

DRUGS (2)
  1. MIFEPREX [Suspect]
     Active Substance: MIFEPRISTONE
  2. MISOPROSTOL [Suspect]
     Active Substance: MISOPROSTOL

REACTIONS (2)
  - Abortion induced incomplete [None]
  - Retained products of conception [None]

NARRATIVE: CASE EVENT DATE: 20230929
